FAERS Safety Report 7920997-2 (Version None)
Quarter: 2011Q4

REPORT INFORMATION
  Report Type: 
  Country: None (occurrence: None)
  Receive Date: 20111117
  Receipt Date: 20111110
  Transmission Date: 20120403
  Serious: Yes (Hospitalization)
  Sender: FDA-Public Use
  Company Number: US-CELGENEUS-163-21880-11111678

PATIENT
  Sex: Male
  Weight: 111.23 kg

DRUGS (12)
  1. TYLENOL 8HR [Concomitant]
     Route: 065
  2. FISH OIL [Concomitant]
     Route: 065
  3. REVLIMID [Suspect]
     Indication: MULTIPLE MYELOMA
     Dosage: 25 MILLIGRAM
     Route: 048
     Dates: start: 20111021
  4. BACTRIM [Suspect]
     Route: 065
  5. VITAMIN B COMPLEX CAP [Concomitant]
     Route: 065
  6. VITAMIN E [Concomitant]
     Route: 065
  7. VITAMIN D [Concomitant]
     Route: 065
  8. CINNAMON [Concomitant]
     Route: 065
  9. ASCORBIC ACID [Concomitant]
     Route: 065
  10. BIAXIN [Concomitant]
     Route: 065
  11. ASPIRIN [Concomitant]
     Dosage: 325
     Route: 065
  12. DEXAMETHASONE [Concomitant]
     Route: 065

REACTIONS (4)
  - PYREXIA [None]
  - DRUG HYPERSENSITIVITY [None]
  - CHILLS [None]
  - HYPERHIDROSIS [None]
